FAERS Safety Report 20479717 (Version 1)
Quarter: 2022Q1

REPORT INFORMATION
  Report Type: Spontaneous
  Country: US (occurrence: None)
  Receive Date: 20220215
  Receipt Date: 20220215
  Transmission Date: 20220424
  Serious: Yes (Death)
  Sender: FDA-Public Use
  Company Number: None

PATIENT
  Age: 79 Year
  Sex: Female

DRUGS (2)
  1. TACROLIMUS [Suspect]
     Active Substance: TACROLIMUS
     Indication: Heart transplant
     Dosage: 1M G BID BY MOUTH?
     Route: 048
  2. EPIVIR HBV [Suspect]
     Active Substance: LAMIVUDINE
     Indication: Hepatitis B
     Dosage: 5MG/ML  5ML  BY MOUTH?
     Route: 048

REACTIONS (3)
  - Gangrene [None]
  - Localised infection [None]
  - Cardiac disorder [None]

NARRATIVE: CASE EVENT DATE: 20220213
